FAERS Safety Report 24819521 (Version 1)
Quarter: 2025Q1

REPORT INFORMATION
  Report Type: Spontaneous
  Country: US (occurrence: US)
  Receive Date: 20250108
  Receipt Date: 20250108
  Transmission Date: 20250409
  Serious: No
  Sender: LEXICON PHARMACEUTICALS
  Company Number: US-LEX-000597

PATIENT
  Age: 77 Year
  Sex: Female

DRUGS (10)
  1. INPEFA [Suspect]
     Active Substance: SOTAGLIFLOZIN
     Indication: Cardiac disorder
     Route: 048
     Dates: start: 20241024
  2. KEFLEX [Suspect]
     Active Substance: CEPHALEXIN
  3. MELOXICAM [Concomitant]
     Active Substance: MELOXICAM
  4. LOW DOSE ASPIRIN [Concomitant]
     Active Substance: ASPIRIN
  5. Hctz/Reserpine/Hydralazine [Concomitant]
  6. TOPIRAMATE [Concomitant]
     Active Substance: TOPIRAMATE
  7. PRISTIQ EXTENDED-RELEASE [Concomitant]
     Active Substance: DESVENLAFAXINE SUCCINATE
  8. WELLBUTRIN XL [Concomitant]
     Active Substance: BUPROPION HYDROCHLORIDE
  9. AZATHIOPRINE [Concomitant]
     Active Substance: AZATHIOPRINE
  10. TRAMADOL [Concomitant]
     Active Substance: TRAMADOL

REACTIONS (2)
  - Nausea [Unknown]
  - Malaise [Unknown]

NARRATIVE: CASE EVENT DATE: 20241001
